FAERS Safety Report 8450782 (Version 3)
Quarter: 2012Q4

REPORT INFORMATION
  Report Type: Spontaneous
  Country: US (occurrence: None)
  Receive Date: 20120301
  Receipt Date: 20120919
  Transmission Date: 20130627
  Serious: Yes (Hospitalization)
  Sender: FDA-Public Use
  Company Number: ACO_29461_2012

PATIENT
  Age: 60 Year
  Sex: Female
  Weight: 71.1 kg

DRUGS (8)
  1. AMPYRA [Suspect]
     Indication: PRODUCT USED FOR UNKNOWN INDICATION
     Dosage: Q 12 HRS
     Route: 048
     Dates: start: 201106
  2. AVONEX [Suspect]
     Indication: MULTIPLE SCLEROSIS
     Route: 030
     Dates: start: 201002
  3. DURAGESIC /00070401/ (ORPHENADRINE CITRATE, PARACETAMOL) [Concomitant]
  4. GABAPENTIN [Concomitant]
  5. METHADONE HYDROCHLORIDE [Concomitant]
  6. SERTRALINE HYDROCHLORIDE [Concomitant]
  7. TIZANIDINE HYDROCHLORIDE [Concomitant]
  8. PRIMIDONE (PRIMIDONE) [Concomitant]

REACTIONS (7)
  - Pneumonia [None]
  - Hepatomegaly [None]
  - Abdominal pain [None]
  - Flatulence [None]
  - Small intestinal obstruction [None]
  - Renal failure acute [None]
  - Pancreatitis [None]
